FAERS Safety Report 11799607 (Version 9)
Quarter: 2016Q1

REPORT INFORMATION
  Report Type: Spontaneous
  Country: US (occurrence: US)
  Receive Date: 20151203
  Receipt Date: 20160325
  Transmission Date: 20160525
  Serious: Yes (Hospitalization)
  Sender: FDA-Public Use
  Company Number: US-UNITED THERAPEUTICS-UNT-2015-015067

PATIENT
  Age: 79 Year
  Sex: Female
  Weight: 69.39 kg

DRUGS (6)
  1. ORENITRAM [Suspect]
     Active Substance: TREPROSTINIL
     Indication: PULMONARY ARTERIAL HYPERTENSION
     Dosage: 0.5 MG, TID
     Route: 048
  2. INSULIN [Concomitant]
     Active Substance: INSULIN NOS
     Indication: PRODUCT USED FOR UNKNOWN INDICATION
  3. ORENITRAM [Suspect]
     Active Substance: TREPROSTINIL
     Dosage: 0.25 MG, TID
     Route: 048
  4. TRACLEER [Concomitant]
     Active Substance: BOSENTAN
     Indication: PRODUCT USED FOR UNKNOWN INDICATION
  5. ORENITRAM [Suspect]
     Active Substance: TREPROSTINIL
     Indication: PULMONARY HYPERTENSION
     Dosage: 0.125 MG, TID
     Route: 048
     Dates: start: 20151111
  6. LOSARTAN. [Concomitant]
     Active Substance: LOSARTAN
     Indication: PRODUCT USED FOR UNKNOWN INDICATION

REACTIONS (16)
  - Delirium [Recovered/Resolved]
  - Clostridium difficile infection [Unknown]
  - Dehydration [Unknown]
  - Hypotension [Recovered/Resolved]
  - Diarrhoea [Recovered/Resolved]
  - Pruritus [Recovered/Resolved]
  - Lethargy [Unknown]
  - Chronic obstructive pulmonary disease [Unknown]
  - Haemoglobin decreased [Unknown]
  - Headache [Recovered/Resolved]
  - Heart rate decreased [Unknown]
  - Dysentery [Unknown]
  - Renal disorder [Unknown]
  - Asthenia [Recovered/Resolved]
  - Wrong drug administered [Unknown]
  - Fluid retention [Unknown]

NARRATIVE: CASE EVENT DATE: 201511
